FAERS Safety Report 10906786 (Version 1)
Quarter: 2015Q1

REPORT INFORMATION
  Report Type: Spontaneous
  Country: US (occurrence: None)
  Receive Date: 20150309
  Receipt Date: 20150309
  Transmission Date: 20150721
  Serious: Yes (Other)
  Sender: FDA-Public Use
  Company Number: 2015COR00049

PATIENT
  Age: 43 Year
  Sex: Female

DRUGS (2)
  1. COCAINE [Suspect]
     Active Substance: COCAINE
     Indication: NASAL DISORDER
  2. AMPHETAMINE [Suspect]
     Active Substance: AMPHETAMINE

REACTIONS (3)
  - Drug abuse [None]
  - Colitis ischaemic [None]
  - Intestinal ischaemia [None]
